FAERS Safety Report 6370276-2 (Version None)
Quarter: 2009Q3

REPORT INFORMATION
  Report Type: 
  Country: None (occurrence: None)
  Receive Date: 20090923
  Receipt Date: 20090917
  Transmission Date: 20100115
  Serious: Yes (Hospitalization, Other)
  Sender: FDA-Public Use
  Company Number: FR-JNJFOC-20090905557

PATIENT
  Age: 61 Year
  Sex: Male

DRUGS (2)
  1. REMICADE [Suspect]
     Route: 042
     Dates: start: 20090608, end: 20090626
  2. REMICADE [Suspect]
     Indication: PSORIASIS
     Route: 042
     Dates: start: 20090608, end: 20090626

REACTIONS (4)
  - ASTHENIA [None]
  - INFUSION RELATED REACTION [None]
  - MYALGIA [None]
  - PYREXIA [None]
